FAERS Safety Report 19095792 (Version 2)
Quarter: 2023Q2

REPORT INFORMATION
  Report Type: Spontaneous
  Country: US (occurrence: US)
  Receive Date: 20210406
  Receipt Date: 20230516
  Transmission Date: 20230721
  Serious: Yes (Hospitalization, Other)
  Sender: FDA-Public Use
  Company Number: US-LUPIN PHARMACEUTICALS INC.-2021-04269

PATIENT
  Age: 11 Month
  Sex: Female

DRUGS (8)
  1. VORICONAZOLE [Interacting]
     Active Substance: VORICONAZOLE
     Indication: Pulmonary mass
     Dosage: UNK
     Route: 065
     Dates: start: 2020
  2. VORICONAZOLE [Interacting]
     Active Substance: VORICONAZOLE
     Indication: Pyrexia
  3. TACROLIMUS [Interacting]
     Active Substance: TACROLIMUS
     Indication: Prophylaxis against graft versus host disease
     Dosage: 1.2 MILLIGRAM, BID
     Route: 048
     Dates: start: 2020
  4. TACROLIMUS [Interacting]
     Active Substance: TACROLIMUS
     Dosage: 1.4 MILLIGRAM, BID
     Route: 048
     Dates: start: 2020
  5. TACROLIMUS [Interacting]
     Active Substance: TACROLIMUS
     Dosage: 1.5 MILLIGRAM, BID
     Route: 048
  6. TACROLIMUS [Interacting]
     Active Substance: TACROLIMUS
     Dosage: 2 MILLIGRAM, BID
     Route: 048
     Dates: start: 202004, end: 202004
  7. CYCLOPHOSPHAMIDE [Concomitant]
     Active Substance: CYCLOPHOSPHAMIDE
     Indication: Prophylaxis against graft versus host disease
     Dosage: UNK
     Route: 065
  8. MYCOPHENOLATE MOFETIL [Concomitant]
     Active Substance: MYCOPHENOLATE MOFETIL
     Indication: Prophylaxis against graft versus host disease
     Dosage: UNK
     Route: 065

REACTIONS (2)
  - Drug interaction [Unknown]
  - Septic shock [Recovering/Resolving]

NARRATIVE: CASE EVENT DATE: 20200401
